FAERS Safety Report 7893355-7 (Version None)
Quarter: 2011Q4

REPORT INFORMATION
  Report Type: 
  Country: None (occurrence: None)
  Receive Date: 20111104
  Receipt Date: 20111024
  Transmission Date: 20120403
  Serious: Yes (Other)
  Sender: FDA-Public Use
  Company Number: BR-PFIZER INC-2011266632

PATIENT
  Age: 34 Year
  Sex: Male
  Weight: 98 kg

DRUGS (5)
  1. CARVEDILOL [Suspect]
     Dosage: 25 MG, 2X/DAY
  2. DIGOXIN [Suspect]
     Dosage: 0.25 MG/DAY
  3. SPIRONOLACTONE [Suspect]
     Dosage: 25 MG/DAY
  4. LOSARTAN [Suspect]
     Dosage: 50 MG/DAY
  5. FUROSEMIDE [Suspect]
     Dosage: 40 MG, 2X/DAY

REACTIONS (26)
  - COUGH [None]
  - CARDIAC FAILURE [None]
  - CARDIOMEGALY [None]
  - LOW DENSITY LIPOPROTEIN INCREASED [None]
  - MALAISE [None]
  - ABDOMINAL PAIN UPPER [None]
  - PULMONARY ARTERIAL HYPERTENSION [None]
  - CYANOSIS [None]
  - SINUS TACHYCARDIA [None]
  - MITRAL VALVE INCOMPETENCE [None]
  - TRICUSPID VALVE INCOMPETENCE [None]
  - DRUG INTOLERANCE [None]
  - ASCITES [None]
  - PERIPHERAL COLDNESS [None]
  - BLOOD UREA INCREASED [None]
  - BLOOD CHOLESTEROL INCREASED [None]
  - BLOOD TRIGLYCERIDES INCREASED [None]
  - CARDIAC FAILURE CONGESTIVE [None]
  - DECREASED APPETITE [None]
  - ERYTHEMA [None]
  - HEPATOMEGALY [None]
  - DIZZINESS [None]
  - PALPITATIONS [None]
  - CARDIAC MURMUR [None]
  - HAEMOGLOBIN DECREASED [None]
  - BUNDLE BRANCH BLOCK LEFT [None]
